FAERS Safety Report 7034673-4 (Version None)
Quarter: 2010Q4

REPORT INFORMATION
  Report Type: 
  Country: None (occurrence: None)
  Receive Date: 20101008
  Receipt Date: 20100825
  Transmission Date: 20110411
  Serious: Yes (Other)
  Sender: FDA-Public Use
  Company Number: PHHY2010FR57321

PATIENT
  Age: 64 Year
  Sex: Male

DRUGS (2)
  1. SANDOSTATIN LAR [Suspect]
     Dosage: 30 MG
     Dates: start: 20100629
  2. SANDOSTATIN LAR [Suspect]
     Dosage: 30 MG
     Dates: start: 20100729

REACTIONS (3)
  - ACNE [None]
  - DIARRHOEA [None]
  - HYPERSENSITIVITY [None]
